FAERS Safety Report 7513207-1 (Version None)
Quarter: 2011Q2

REPORT INFORMATION
  Report Type: 
  Country: None (occurrence: None)
  Receive Date: 20110531
  Receipt Date: 20110525
  Transmission Date: 20111010
  Serious: Yes (Disabling)
  Sender: FDA-Public Use
  Company Number: NO-B.I. PHARMACEUTICALS,INC./RIDGEFIELD-2011-SW-00060SW

PATIENT
  Age: 83 Year
  Sex: Female

DRUGS (2)
  1. MOBIC [Suspect]
     Indication: ARTHRALGIA
     Dosage: 7.5 MG
     Dates: start: 19980101, end: 20100101
  2. THYROXIN [Concomitant]
     Indication: GOITRE
     Dosage: 100 MG
     Dates: start: 19900101

REACTIONS (3)
  - PULMONARY FIBROSIS [None]
  - ANAEMIA [None]
  - MYELODYSPLASTIC SYNDROME [None]
